FAERS Safety Report 16766838 (Version 2)
Quarter: 2019Q3

REPORT INFORMATION
  Report Type: Spontaneous
  Country: US (occurrence: US)
  Receive Date: 20190903
  Receipt Date: 20190904
  Transmission Date: 20191005
  Serious: No
  Sender: FDA-Public Use
  Company Number: US-PFIZER INC-2019372096

PATIENT
  Age: 58 Year
  Sex: Female
  Weight: 67.13 kg

DRUGS (2)
  1. GADAVIST [Suspect]
     Active Substance: GADOBUTROL
     Indication: NUCLEAR MAGNETIC RESONANCE IMAGING
     Dosage: 7 ML, UNK
     Dates: start: 20190429
  2. DIAZEPAM. [Suspect]
     Active Substance: DIAZEPAM
     Indication: CLAUSTROPHOBIA
     Dosage: UNK
     Dates: start: 20190429

REACTIONS (1)
  - Gluten sensitivity [Not Recovered/Not Resolved]

NARRATIVE: CASE EVENT DATE: 20190429
